FAERS Safety Report 13088615 (Version 1)
Quarter: 2017Q1

REPORT INFORMATION
  Report Type: Spontaneous
  Country: GB (occurrence: GB)
  Receive Date: 20170105
  Receipt Date: 20170105
  Transmission Date: 20170428
  Serious: Yes (Other)
  Sender: FDA-Public Use
  Company Number: GB-APOTEX-2016AP016307

PATIENT
  Age: 23 Year
  Sex: Female
  Weight: 50 kg

DRUGS (1)
  1. PAXIL [Suspect]
     Active Substance: PAROXETINE HYDROCHLORIDE
     Indication: PERINATAL DEPRESSION
     Dosage: UNK
     Route: 048
     Dates: start: 20150825, end: 20160816

REACTIONS (5)
  - Abdominal discomfort [Unknown]
  - Dizziness [Recovered/Resolved with Sequelae]
  - Nausea [Recovered/Resolved]
  - Malaise [Unknown]
  - Depression suicidal [Recovered/Resolved with Sequelae]

NARRATIVE: CASE EVENT DATE: 20151218
